FAERS Safety Report 9666229 (Version 1)
Quarter: 2013Q4

REPORT INFORMATION
  Report Type: Report from Study
  Country: US (occurrence: US)
  Receive Date: 20131104
  Receipt Date: 20131104
  Transmission Date: 20140711
  Serious: Yes (Other)
  Sender: FDA-Public Use
  Company Number: US-ROCHE-1293608

PATIENT
  Sex: Female

DRUGS (1)
  1. BEVACIZUMAB [Suspect]
     Indication: SQUAMOUS CELL CARCINOMA OF THE CERVIX
     Route: 042

REACTIONS (17)
  - Leukopenia [Unknown]
  - Neutropenia [Unknown]
  - Anaemia [Unknown]
  - Deep vein thrombosis [Unknown]
  - Pulmonary embolism [Unknown]
  - Blood disorder [Unknown]
  - Hypertension [Unknown]
  - Cardiovascular disorder [Unknown]
  - Coagulopathy [Unknown]
  - Gastrointestinal disorder [Unknown]
  - Metabolic disorder [Unknown]
  - Pain [Unknown]
  - Vaginal haemorrhage [Unknown]
  - Urinary fistula [Unknown]
  - Lung disorder [Unknown]
  - Renal disorder [Unknown]
  - Urogenital disorder [Unknown]
